FAERS Safety Report 9361765 (Version 6)
Quarter: 2014Q3

REPORT INFORMATION
  Report Type: Spontaneous
  Country: JP (occurrence: JP)
  Receive Date: 20130621
  Receipt Date: 20140811
  Transmission Date: 20150326
  Serious: Yes (Death, Life-Threatening, Hospitalization)
  Sender: FDA-Public Use
  Company Number: JP-BRISTOL-MYERS SQUIBB COMPANY-19032051

PATIENT
  Age: 48 Year
  Sex: Male
  Weight: 76 kg

DRUGS (10)
  1. ERBITUX [Suspect]
     Active Substance: CETUXIMAB
     Indication: METASTASES TO LYMPH NODES
     Route: 041
     Dates: start: 20121004, end: 20130411
  2. TS-1 [Suspect]
     Active Substance: GIMERACIL\OTERACIL POTASSIUM\TEGAFUR
     Indication: METASTASES TO LYMPH NODES
     Dosage: CAPS
     Route: 048
     Dates: start: 20121004, end: 20130425
  3. TS-1 [Suspect]
     Active Substance: GIMERACIL\OTERACIL POTASSIUM\TEGAFUR
     Indication: METASTASES TO LIVER
     Dosage: CAPS
     Route: 048
     Dates: start: 20121004, end: 20130425
  4. OXALIPLATIN. [Suspect]
     Active Substance: OXALIPLATIN
     Indication: METASTASES TO LIVER
     Dosage: INFUSION
     Route: 041
     Dates: start: 20121004, end: 20130411
  5. ERBITUX [Suspect]
     Active Substance: CETUXIMAB
     Indication: RECTAL CANCER
     Route: 041
     Dates: start: 20121004, end: 20130411
  6. OXALIPLATIN. [Suspect]
     Active Substance: OXALIPLATIN
     Indication: METASTASES TO LYMPH NODES
     Dosage: INFUSION
     Route: 041
     Dates: start: 20121004, end: 20130411
  7. TS-1 [Suspect]
     Active Substance: GIMERACIL\OTERACIL POTASSIUM\TEGAFUR
     Indication: RECTAL CANCER
     Dosage: CAPS
     Route: 048
     Dates: start: 20121004, end: 20130425
  8. OXALIPLATIN. [Suspect]
     Active Substance: OXALIPLATIN
     Indication: RECTAL CANCER
     Dosage: INFUSION
     Route: 041
     Dates: start: 20121004, end: 20130411
  9. MINOMYCIN [Suspect]
     Active Substance: MINOCYCLINE HYDROCHLORIDE
     Indication: SKIN DISORDER
     Dosage: CAPS
     Route: 048
     Dates: start: 20121004, end: 20130425
  10. ERBITUX [Suspect]
     Active Substance: CETUXIMAB
     Indication: METASTASES TO LIVER
     Route: 041
     Dates: start: 20121004, end: 20130411

REACTIONS (1)
  - Cholangitis sclerosing [Fatal]

NARRATIVE: CASE EVENT DATE: 20130509
